FAERS Safety Report 23800979 (Version 5)
Quarter: 2024Q2

REPORT INFORMATION
  Report Type: Report from Study
  Country: CA (occurrence: CA)
  Receive Date: 20240430
  Receipt Date: 20240627
  Transmission Date: 20240716
  Serious: Yes (Hospitalization, Other)
  Sender: FDA-Public Use
  Company Number: CA-BAUSCH-BL-2024-005368

PATIENT
  Age: 69 Year
  Sex: Female

DRUGS (4)
  1. SILIQ [Suspect]
     Active Substance: BRODALUMAB
     Indication: Psoriasis
     Dosage: 210 MG / 1.5 ML, WEEKLY (WEEK 0 TO WEEK 2)
     Route: 058
     Dates: start: 20210716, end: 20210803
  2. SILIQ [Suspect]
     Active Substance: BRODALUMAB
     Dosage: 210 MG / 1.5 ML, Q2 WEEKS
     Route: 058
     Dates: end: 20240411
  3. SILIQ [Suspect]
     Active Substance: BRODALUMAB
     Dosage: 210 MG / 1.5 ML, Q2 WEEKS
     Route: 058
     Dates: start: 20240524
  4. SILIQ [Suspect]
     Active Substance: BRODALUMAB
     Dosage: 210 MG / 1.5 ML, Q2 WEEKS
     Route: 058
     Dates: start: 20240604

REACTIONS (11)
  - Malaise [Unknown]
  - Guillain-Barre syndrome [Not Recovered/Not Resolved]
  - Endotracheal intubation [Unknown]
  - Medical induction of coma [Unknown]
  - Sciatica [Not Recovered/Not Resolved]
  - Tremor [Unknown]
  - Fall [Unknown]
  - Skin burning sensation [Not Recovered/Not Resolved]
  - Peripheral swelling [Recovering/Resolving]
  - COVID-19 [Not Recovered/Not Resolved]
  - Oral herpes [Unknown]

NARRATIVE: CASE EVENT DATE: 20240401
